FAERS Safety Report 20136078 (Version 1)
Quarter: 2021Q4

REPORT INFORMATION
  Report Type: Spontaneous
  Country: US (occurrence: None)
  Receive Date: 20211130
  Receipt Date: 20211130
  Transmission Date: 20220303
  Serious: No
  Sender: FDA-Public Use
  Company Number: None

PATIENT

DRUGS (2)
  1. TOPAMAX [Suspect]
     Active Substance: TOPIRAMATE
  2. TOPROL XL [Suspect]
     Active Substance: METOPROLOL SUCCINATE

REACTIONS (3)
  - Transcription medication error [None]
  - Product dispensing error [None]
  - Wrong product administered [None]
